FAERS Safety Report 18217865 (Version 1)
Quarter: 2020Q3

REPORT INFORMATION
  Report Type: Spontaneous
  Country: US (occurrence: US)
  Receive Date: 20200901
  Receipt Date: 20200901
  Transmission Date: 20201103
  Serious: Yes (Hospitalization, Other)
  Sender: FDA-Public Use
  Company Number: US-BAYER-2020-179895

PATIENT
  Age: 66 Year
  Sex: Female

DRUGS (4)
  1. ACETYLSALICYLIC ACID [Suspect]
     Active Substance: ASPIRIN
     Indication: ANTIPLATELET THERAPY
  2. TICAGRELOR. [Suspect]
     Active Substance: TICAGRELOR
     Dosage: 90 MG
  3. CLOPIDOGREL [Suspect]
     Active Substance: CLOPIDOGREL BISULFATE
     Dosage: 75 MG
  4. TIROFIBAN [Suspect]
     Active Substance: TIROFIBAN
     Dosage: 12.5 MG

REACTIONS (5)
  - Labelled drug-drug interaction medication error [Unknown]
  - Blood loss anaemia [Unknown]
  - Vessel puncture site haemorrhage [Unknown]
  - Contusion [Unknown]
  - Petechiae [Unknown]
